FAERS Safety Report 4422150-6 (Version None)
Quarter: 2004Q3

REPORT INFORMATION
  Report Type: 
  Country: None (occurrence: None)
  Receive Date: 20040712
  Receipt Date: 20030729
  Transmission Date: 20050211
  Serious: Yes (Hospitalization)
  Sender: FDA-Public Use
  Company Number: TAP2003Q01776

PATIENT
  Age: 2 Month
  Sex: Male
  Weight: 9.0719 kg

DRUGS (4)
  1. PREVACID [Suspect]
     Indication: GASTROOESOPHAGEAL REFLUX DISEASE
     Dosage: 12 MG, 1 IN 1 D; PER ORAL
     Route: 048
     Dates: start: 20030101
  2. REGLAN [Suspect]
     Indication: GASTROOESOPHAGEAL REFLUX DISEASE
     Dosage: 5 MG/ML, 1 IN 1 D; PER ORAL
     Route: 048
     Dates: start: 20030101
  3. CARA CREAM [SIC] [Concomitant]
  4. TAPIOCA-BASED INFANT FORMULA (INFANT FORMULAS) [Concomitant]

REACTIONS (1)
  - DRUG INEFFECTIVE [None]
